FAERS Safety Report 8518020-4 (Version None)
Quarter: 2012Q3

REPORT INFORMATION
  Report Type: 
  Country: None (occurrence: None)
  Receive Date: 20120718
  Receipt Date: 20110804
  Transmission Date: 20120928
  Serious: No
  Sender: FDA-Public Use
  Company Number: US-BRISTOL-MYERS SQUIBB COMPANY-15948771

PATIENT
  Age: 73 Year
  Sex: Female

DRUGS (10)
  1. FISH OIL [Concomitant]
  2. GLUCOSAMINE [Concomitant]
  3. WARFARIN SODIUM [Suspect]
     Indication: ATRIAL FIBRILLATION
  4. SYNTHROID [Concomitant]
     Dosage: 1 DF = 2.5 UNIT NOT MENTIONED
  5. ATENOLOL [Concomitant]
  6. GABAPENTIN [Concomitant]
  7. AMIODARONE HCL [Concomitant]
  8. GAS-X [Concomitant]
  9. AMLODIPINE [Concomitant]
  10. ESTRING [Concomitant]

REACTIONS (1)
  - INTERNATIONAL NORMALISED RATIO ABNORMAL [None]
